FAERS Safety Report 6150660-2 (Version None)
Quarter: 2009Q2

REPORT INFORMATION
  Report Type: 
  Country: None (occurrence: None)
  Receive Date: 20090409
  Receipt Date: 20090407
  Transmission Date: 20091009
  Serious: No
  Sender: FDA-Public Use
  Company Number: US-B.I. PHARMACEUTICALS,INC./RIDGEFIELD-2009-BP-04327BP

PATIENT

DRUGS (4)
  1. CATAPRES-TTS-1 [Suspect]
  2. HYDRALAZINE HCL [Concomitant]
     Route: 048
  3. METOPROLOL TARTRATE [Concomitant]
     Route: 048
  4. DIOVAN [Concomitant]
     Route: 048

REACTIONS (1)
  - LATEX ALLERGY [None]
